FAERS Safety Report 10482538 (Version 2)
Quarter: 2014Q4

REPORT INFORMATION
  Report Type: Report from Study
  Country: US (occurrence: US)
  Receive Date: 20140929
  Receipt Date: 20141126
  Transmission Date: 20150528
  Serious: Yes (Other)
  Sender: FDA-Public Use
  Company Number: US-PURDUE-USA-2014-0117605

PATIENT
  Age: 67 Year
  Sex: Female

DRUGS (3)
  1. BTDS PATCH [Suspect]
     Active Substance: BUPRENORPHINE
     Indication: PAIN
     Dosage: 10 MCG/HR, WEEKLY
     Route: 062
     Dates: start: 20141110
  2. BTDS PATCH [Suspect]
     Active Substance: BUPRENORPHINE
     Dosage: 5 MCG/HR, WEEKLY
     Route: 062
     Dates: start: 201410, end: 20141110
  3. BTDS PATCH [Suspect]
     Active Substance: BUPRENORPHINE
     Dosage: 5 MG/HR, WEEKLY
     Route: 062
     Dates: start: 201409, end: 201410

REACTIONS (3)
  - Gastrooesophageal reflux disease [Unknown]
  - Myocardial infarction [Unknown]
  - Inadequate analgesia [Not Recovered/Not Resolved]

NARRATIVE: CASE EVENT DATE: 201409
